FAERS Safety Report 22223684 (Version 1)
Quarter: 2023Q2

REPORT INFORMATION
  Report Type: Spontaneous
  Country: US (occurrence: None)
  Receive Date: 20230417
  Receipt Date: 20230417
  Transmission Date: 20230722
  Serious: Yes (Hospitalization)
  Sender: FDA-Public Use
  Company Number: None

PATIENT
  Sex: Male
  Weight: 83.46 kg

DRUGS (18)
  1. CAPECITABINE [Suspect]
     Active Substance: CAPECITABINE
     Indication: Gastric cancer
     Dosage: FREQUENCY : TWICE A DAY;?OTHER ROUTE : ORAL14DAYS ON,7D OFF     ;?
     Route: 050
     Dates: start: 202302, end: 202304
  2. ALBUTEROL [Concomitant]
  3. ATORVASTATIN [Concomitant]
  4. CALCIUM\VITAMIN D [Concomitant]
     Active Substance: CALCIUM\VITAMIN D
  5. COZAAR [Concomitant]
  6. FLOMAX [Concomitant]
  7. FLUOCINOLONE [Concomitant]
  8. FOLIC ACID [Concomitant]
  9. FUROSEMIDE [Concomitant]
  10. GABAPENTIN [Concomitant]
  11. LACTOBACIILLUS [Concomitant]
  12. LOMOTIL [Concomitant]
  13. NEXIUM [Concomitant]
     Active Substance: ESOMEPRAZOLE MAGNESIUM
  14. OXALIPLATIN [Concomitant]
  15. TRADJENTA [Concomitant]
  16. TYLENOL 8 HOUR ARTHRITIS PAIN [Concomitant]
  17. VITAMIN B COMPLEX COMBINATIONS [Concomitant]
  18. ZETIA [Concomitant]

REACTIONS (1)
  - Hospitalisation [None]
